FAERS Safety Report 20540147 (Version 1)
Quarter: 2022Q1

REPORT INFORMATION
  Report Type: Report from Study
  Country: CN (occurrence: CN)
  Receive Date: 20220302
  Receipt Date: 20220302
  Transmission Date: 20220424
  Serious: Yes (Other)
  Sender: FDA-Public Use
  Company Number: CN-JNJFOC-20211059409

PATIENT

DRUGS (9)
  1. BEDAQUILINE [Suspect]
     Active Substance: BEDAQUILINE
     Indication: Tuberculosis
     Dosage: FOR 2 WEEKS, ONCE, WITH MEAL
     Route: 048
  2. BEDAQUILINE [Suspect]
     Active Substance: BEDAQUILINE
     Dosage: ONCE, WITH MEAL
     Route: 048
  3. LINEZOLID [Suspect]
     Active Substance: LINEZOLID
     Indication: Tuberculosis
     Dosage: ONCE, BEFORE OR AFTER MEAL
     Route: 065
  4. CISPLATIN [Suspect]
     Active Substance: CISPLATIN
     Indication: Tuberculosis
     Route: 065
  5. PYRAZINAMIDE [Suspect]
     Active Substance: PYRAZINAMIDE
     Indication: Tuberculosis
     Dosage: ONCE, BEFORE OR AFTER MEAL
     Route: 065
  6. LEVOFLOXACIN [Suspect]
     Active Substance: LEVOFLOXACIN
     Indication: Tuberculosis
     Dosage: 500MG DAILY FOR LSSEQL50KG?750MG DAILY FOR }50KG?ONCE, BEFORE OR AFTER MEAL
     Route: 065
  7. CLOFAZIMINE [Suspect]
     Active Substance: CLOFAZIMINE
     Indication: Tuberculosis
     Dosage: ONCE, WITH MEAL
     Route: 065
  8. PROTIONAMIDE [Suspect]
     Active Substance: PROTIONAMIDE
     Indication: Tuberculosis
     Dosage: 500 MG DAILY FOR LSSEQL50KG?600MG DAILY FOR }50KG?ONCE, BEFORE OR AFTER MEAL
     Route: 065
  9. ETHAMBUTOL [Suspect]
     Active Substance: ETHAMBUTOL HYDROCHLORIDE
     Indication: Tuberculosis
     Dosage: 750 MG DAILY FOR LSSEQL50KG?1000MG DAILY FOR }50KG?ONCE, BEFORE OR AFTER MEAL
     Route: 065

REACTIONS (20)
  - Electrocardiogram QT prolonged [Unknown]
  - Neuropathy peripheral [Unknown]
  - Optic neuritis [Unknown]
  - Liver injury [Unknown]
  - Thrombocytopenia [Unknown]
  - Arthralgia [Unknown]
  - Myalgia [Unknown]
  - Hyperuricaemia [Unknown]
  - Gastrointestinal disorder [Unknown]
  - Asthenia [Unknown]
  - Dizziness [Unknown]
  - Headache [Unknown]
  - Rash [Unknown]
  - Anxiety [Unknown]
  - Palpitations [Unknown]
  - Depression [Unknown]
  - Anaemia [Unknown]
  - Insomnia [Unknown]
  - Off label use [Unknown]
  - Intentional product use issue [Unknown]
